FAERS Safety Report 17788647 (Version 3)
Quarter: 2020Q2

REPORT INFORMATION
  Report Type: Spontaneous
  Country: US (occurrence: US)
  Receive Date: 20200515
  Receipt Date: 20200618
  Transmission Date: 20200714
  Serious: No
  Sender: FDA-Public Use
  Company Number: US-GW PHARMA-202005USGW01708

PATIENT

DRUGS (5)
  1. EPIDIOLEX [Suspect]
     Active Substance: CANNABIDIOL
     Indication: LENNOX-GASTAUT SYNDROME
     Dosage: 100 MILLIGRAM, BID
     Route: 048
     Dates: start: 20200213, end: 20200502
  2. ZONISAMIDE. [Concomitant]
     Active Substance: ZONISAMIDE
     Indication: PRODUCT USED FOR UNKNOWN INDICATION
     Dosage: UNK
     Route: 065
  3. EPIDIOLEX [Suspect]
     Active Substance: CANNABIDIOL
     Dosage: UNK (WEANED OFF)
     Route: 048
     Dates: start: 20200503, end: 2020
  4. VIMPAT [Concomitant]
     Active Substance: LACOSAMIDE
     Dosage: UNK (INCREASED DOSE)
     Route: 065
     Dates: start: 2020
  5. VIMPAT [Concomitant]
     Active Substance: LACOSAMIDE
     Indication: SEIZURE
     Dosage: UNK
     Route: 065
     Dates: end: 2020

REACTIONS (6)
  - Balance disorder [Recovering/Resolving]
  - Educational problem [Recovering/Resolving]
  - Speech disorder [Recovering/Resolving]
  - Behaviour disorder [Recovering/Resolving]
  - Seizure [Recovering/Resolving]
  - Gait disturbance [Recovering/Resolving]

NARRATIVE: CASE EVENT DATE: 2020
